FAERS Safety Report 6887026-3 (Version None)
Quarter: 2010Q3

REPORT INFORMATION
  Report Type: 
  Country: None (occurrence: None)
  Receive Date: 20100730
  Receipt Date: 20100726
  Transmission Date: 20110219
  Serious: Yes (Hospitalization)
  Sender: FDA-Public Use
  Company Number: FR-BRISTOL-MYERS SQUIBB COMPANY-15213176

PATIENT
  Age: 85 Year
  Sex: Female

DRUGS (6)
  1. COUMADIN [Suspect]
     Dosage: TOOK 4 MG AND 3 MG ALTERNATELY
     Route: 048
     Dates: end: 20100607
  2. LASIX [Concomitant]
     Dosage: 1DF=1TAB OR 1/4TAB LASILIX SPECIAL
  3. LEVOTHYROXINE SODIUM [Concomitant]
  4. OMEPRAZOLE [Concomitant]
  5. LORAZEPAM [Concomitant]
  6. AERIUS [Concomitant]

REACTIONS (3)
  - FALL [None]
  - OPEN WOUND [None]
  - SUBDURAL HAEMATOMA [None]
